FAERS Safety Report 8376844 (Version 2)
Quarter: 2013Q1

REPORT INFORMATION
  Report Type: Report from Study
  Country: US (occurrence: US)
  Receive Date: 20120129
  Receipt Date: 20130129
  Transmission Date: 20140127
  Serious: Yes (Other)
  Sender: FDA-Public Use
  Company Number: US-ABBOTT-11P-163-0834647-00

PATIENT
  Sex: Female
  Weight: 52.21 kg

DRUGS (4)
  1. HUMIRA 40 MG/ 0.8 ML PRE-FILLED SYRINGE [Suspect]
     Indication: RHEUMATOID ARTHRITIS
     Dates: start: 2008
  2. METHOTREXATE [Concomitant]
     Indication: RHEUMATOID ARTHRITIS
     Dosage: 2.5 MG PILLS - FIVE WEEKLY
  3. ANTIVERT [Concomitant]
     Indication: VERTIGO
     Dosage: 2.5 MG - ONE TWICE A DAY
  4. FOLIC ACID [Concomitant]
     Indication: VITAMIN SUPPLEMENTATION
     Dosage: 1 MG - DAILY

REACTIONS (10)
  - Pain [Recovered/Resolved]
  - Erythema [Recovered/Resolved]
  - Skin warm [Recovered/Resolved]
  - Skin swelling [Recovered/Resolved]
  - Cellulitis [None]
  - Erythema [Recovered/Resolved]
  - Skin warm [Recovered/Resolved]
  - Skin swelling [Recovered/Resolved]
  - Blood iron decreased [Unknown]
  - Vitamin D decreased [Unknown]
